FAERS Safety Report 7562157-3 (Version None)
Quarter: 2011Q2

REPORT INFORMATION
  Report Type: 
  Country: None (occurrence: None)
  Receive Date: 20110614
  Receipt Date: 20110531
  Transmission Date: 20111010
  Serious: Yes (Life-Threatening, Hospitalization, Other)
  Sender: FDA-Public Use
  Company Number: 2011MA006582

PATIENT
  Age: 32 Year
  Sex: Male

DRUGS (1)
  1. BUPROPION HYDROCHLORIDE [Suspect]
     Indication: OVERDOSE
     Dosage: 6 G, 1X, PO
     Route: 048

REACTIONS (14)
  - CONFUSIONAL STATE [None]
  - MUSCLE FATIGUE [None]
  - BLOOD CREATINE PHOSPHOKINASE INCREASED [None]
  - DEPRESSION [None]
  - RESPIRATORY FATIGUE [None]
  - SUICIDE ATTEMPT [None]
  - LETHARGY [None]
  - HEART RATE INCREASED [None]
  - INTENTIONAL OVERDOSE [None]
  - CONVULSION [None]
  - DYSARTHRIA [None]
  - BLOOD PRESSURE SYSTOLIC INCREASED [None]
  - BODY TEMPERATURE INCREASED [None]
  - AGITATION [None]
